FAERS Safety Report 5084478-9 (Version None)
Quarter: 2006Q3

REPORT INFORMATION
  Report Type: 
  Country: None (occurrence: None)
  Receive Date: 20060821
  Receipt Date: 20060810
  Transmission Date: 20061208
  Serious: Yes (Hospitalization)
  Sender: FDA-Public Use
  Company Number: CA-AVENTIS-200614335EU

PATIENT
  Age: 10 Week
  Sex: Female

DRUGS (5)
  1. LASIX [Suspect]
     Indication: CARDIAC FAILURE
     Route: 048
     Dates: start: 20060528
  2. DIGOXIN [Concomitant]
     Indication: CARDIAC FAILURE
     Route: 048
  3. ALDACTAZIDE [Concomitant]
     Route: 048
  4. SODIUM CHLORIDE [Concomitant]
     Route: 048
  5. TRI-VI-SOL [Concomitant]
     Indication: MULTI-VITAMIN DEFICIENCY
     Route: 048

REACTIONS (5)
  - BLOOD DISORDER [None]
  - INFECTION [None]
  - KIDNEY INFECTION [None]
  - SEPSIS [None]
  - URINARY TRACT INFECTION [None]
